FAERS Safety Report 19916295 (Version 2)
Quarter: 2021Q4

REPORT INFORMATION
  Report Type: Spontaneous
  Country: US (occurrence: US)
  Receive Date: 20211005
  Receipt Date: 20211015
  Transmission Date: 20220303
  Serious: Yes (Other)
  Sender: FDA-Public Use
  Company Number: US-NOVOPROD-851747

PATIENT
  Sex: Male

DRUGS (1)
  1. NOVOLOG [Suspect]
     Active Substance: INSULIN ASPART
     Indication: Product used for unknown indication
     Dosage: 8-10 UNITS BEFORE EACH MEAL
     Route: 058
     Dates: start: 2018

REACTIONS (3)
  - Macular degeneration [Unknown]
  - Retinopathy [Not Recovered/Not Resolved]
  - Blindness [Not Recovered/Not Resolved]
